FAERS Safety Report 7271899 (Version 2)
Quarter: 2021Q2

REPORT INFORMATION
  Report Type: Report from Study
  Country: US (occurrence: US)
  Receive Date: 20100205
  Receipt Date: 20210520
  Transmission Date: 20210717
  Serious: Yes (Congenital Anomaly)
  Sender: FDA-Public Use
  Company Number: US-PFIZER INC-2010014324

PATIENT
  Sex: Female

DRUGS (12)
  1. INVIRASE [Suspect]
     Active Substance: SAQUINAVIR MESYLATE
     Indication: HIV INFECTION
     Dosage: 2000 MG, DAILY
     Route: 048
     Dates: start: 20070319, end: 20090924
  2. VIRACEPT [Suspect]
     Active Substance: NELFINAVIR MESYLATE
     Indication: PERSISTENT GENERALISED LYMPHADENOPATHY
  3. ZIDOVUDINE. [Suspect]
     Active Substance: ZIDOVUDINE
     Indication: PERSISTENT GENERALISED LYMPHADENOPATHY
  4. INVIRASE [Suspect]
     Active Substance: SAQUINAVIR MESYLATE
     Indication: PERSISTENT GENERALISED LYMPHADENOPATHY
  5. NORVIR [Suspect]
     Active Substance: RITONAVIR
     Indication: PERSISTENT GENERALISED LYMPHADENOPATHY
  6. VIRACEPT [Suspect]
     Active Substance: NELFINAVIR MESYLATE
     Indication: HIV INFECTION
     Dosage: 2500 MG, DAILY
     Route: 048
     Dates: start: 20090924
  7. ZIDOVUDINE. [Suspect]
     Active Substance: ZIDOVUDINE
     Indication: HIV INFECTION
     Dosage: UNK
     Route: 042
     Dates: start: 20100109, end: 20100109
  8. RETROVIR [Suspect]
     Active Substance: ZIDOVUDINE
     Indication: HIV INFECTION
     Dosage: 1708 MG/KG/HOUR, DAILY
     Route: 042
     Dates: start: 20100109, end: 20100109
  9. COMBIVIR [Suspect]
     Active Substance: LAMIVUDINE\ZIDOVUDINE
     Indication: HIV INFECTION
     Dosage: 2 DF (2 TAB/CAPS), DAILY
     Route: 048
     Dates: start: 20070319
  10. COMBIVIR [Suspect]
     Active Substance: LAMIVUDINE\ZIDOVUDINE
     Indication: PERSISTENT GENERALISED LYMPHADENOPATHY
  11. RETROVIR [Suspect]
     Active Substance: ZIDOVUDINE
     Indication: PERSISTENT GENERALISED LYMPHADENOPATHY
  12. NORVIR [Suspect]
     Active Substance: RITONAVIR
     Indication: HIV INFECTION
     Dosage: 200 MG, DAILY
     Route: 048
     Dates: start: 20070319, end: 20090924

REACTIONS (2)
  - Congenital nail disorder [Unknown]
  - Maternal exposure during pregnancy [Unknown]
